FAERS Safety Report 6338828-3 (Version None)
Quarter: 2009Q3

REPORT INFORMATION
  Report Type: 
  Country: None (occurrence: None)
  Receive Date: 20090903
  Receipt Date: 20090901
  Transmission Date: 20100115
  Serious: Yes (Other)
  Sender: FDA-Public Use
  Company Number: US-BAYER-200929419NA

PATIENT
  Age: 49 Year
  Sex: Female

DRUGS (1)
  1. MENOSTAR [Suspect]
     Indication: MENOPAUSAL SYMPTOMS

REACTIONS (4)
  - CRYING [None]
  - DEPRESSION [None]
  - DEPRESSION SUICIDAL [None]
  - FEELING ABNORMAL [None]
